FAERS Safety Report 4680400-5 (Version None)
Quarter: 2005Q2

REPORT INFORMATION
  Report Type: 
  Country: None (occurrence: None)
  Receive Date: 20050531
  Receipt Date: 20050222
  Transmission Date: 20051028
  Serious: No
  Sender: FDA-Public Use
  Company Number: WAES 0502USA02773

PATIENT
  Age: 73 Year
  Sex: Female

DRUGS (3)
  1. ZETIA [Suspect]
     Indication: LOW DENSITY LIPOPROTEIN INCREASED
     Dosage: 10 MG/DAILY/PO
     Route: 048
     Dates: start: 20041222
  2. ZOCOR [Concomitant]
  3. (THERAPY UNSPECIFIED) [Concomitant]

REACTIONS (2)
  - BURNING SENSATION [None]
  - GLOSSODYNIA [None]
